FAERS Safety Report 17536571 (Version 6)
Quarter: 2020Q2

REPORT INFORMATION
  Report Type: Report from Study
  Country: CO (occurrence: CO)
  Receive Date: 20200313
  Receipt Date: 20200625
  Transmission Date: 20200713
  Serious: Yes (Hospitalization)
  Sender: FDA-Public Use
  Company Number: CO-BRISTOL-MYERS SQUIBB COMPANY-BMS-2017-122396

PATIENT
  Age: 48 Year
  Sex: Female
  Weight: 48 kg

DRUGS (3)
  1. ABATACEPT [Suspect]
     Active Substance: ABATACEPT
     Indication: RHEUMATOID ARTHRITIS
     Dosage: 500 MILLIGRAM, Q4WK
     Route: 042
     Dates: start: 20170101
  2. ACYCLOVIR [ACICLOVIR] [Concomitant]
     Active Substance: ACYCLOVIR
     Indication: PRODUCT USED FOR UNKNOWN INDICATION
     Dosage: UNK
     Route: 065
  3. ACETAMINOPHEN. [Concomitant]
     Active Substance: ACETAMINOPHEN
     Indication: PRODUCT USED FOR UNKNOWN INDICATION
     Dosage: UNK
     Route: 065

REACTIONS (16)
  - Arthralgia [Recovering/Resolving]
  - Pain [Recovering/Resolving]
  - Nasopharyngitis [Unknown]
  - Erythema [Recovering/Resolving]
  - Nervousness [Recovered/Resolved]
  - Arthritis [Recovering/Resolving]
  - Rash [Recovering/Resolving]
  - Abdominal pain upper [Recovered/Resolved]
  - Inflammation [Recovering/Resolving]
  - Rosacea [Recovering/Resolving]
  - Echocardiogram abnormal [Unknown]
  - Malaise [Unknown]
  - Pain in extremity [Recovering/Resolving]
  - Teething [Recovering/Resolving]
  - Tachycardia [Unknown]
  - Back pain [Recovering/Resolving]

NARRATIVE: CASE EVENT DATE: 20190319
